FAERS Safety Report 5900192-9 (Version None)
Quarter: 2008Q3

REPORT INFORMATION
  Report Type: 
  Country: None (occurrence: None)
  Receive Date: 20080924
  Receipt Date: 20080912
  Transmission Date: 20090109
  Serious: Yes (Hospitalization)
  Sender: FDA-Public Use
  Company Number: 2008074416

PATIENT
  Age: 95 Year
  Sex: Female

DRUGS (1)
  1. FRAGMIN [Suspect]
     Indication: DEEP VEIN THROMBOSIS

REACTIONS (6)
  - ASTHMA [None]
  - CARDIAC FAILURE [None]
  - COUGH [None]
  - DRUG HYPERSENSITIVITY [None]
  - MYOCARDIAL INFARCTION [None]
  - VIRAL INFECTION [None]
